FAERS Safety Report 23207096 (Version 1)
Quarter: 2023Q4

REPORT INFORMATION
  Report Type: Spontaneous
  Country: US (occurrence: US)
  Receive Date: 20231120
  Receipt Date: 20231120
  Transmission Date: 20240110
  Serious: No
  Sender: FDA-Public Use
  Company Number: US-009507513-2311USA000784

PATIENT
  Sex: Female

DRUGS (2)
  1. KEYTRUDA [Suspect]
     Active Substance: PEMBROLIZUMAB
     Indication: Breast cancer
     Dosage: UNK
     Route: 042
     Dates: end: 20231101
  2. LOSARTAN [Concomitant]
     Active Substance: LOSARTAN
     Dosage: 25 G

REACTIONS (2)
  - Weight increased [Not Recovered/Not Resolved]
  - Trichorrhexis [Unknown]
